FAERS Safety Report 8489370-5 (Version None)
Quarter: 2012Q3

REPORT INFORMATION
  Report Type: 
  Country: None (occurrence: None)
  Receive Date: 20120705
  Receipt Date: 20120625
  Transmission Date: 20120928
  Serious: Yes (Hospitalization)
  Sender: FDA-Public Use
  Company Number: AT-NAPPMUNDI-DEU-2012-0009095

PATIENT
  Sex: Female

DRUGS (1)
  1. HYDROMORPHONE HCL [Suspect]
     Indication: PRODUCT USED FOR UNKNOWN INDICATION
     Dosage: 24 DF, SINGLE
     Route: 048
     Dates: start: 20120408

REACTIONS (8)
  - INTENTIONAL OVERDOSE [None]
  - HYPOTHERMIA [None]
  - SOPOR [None]
  - RESPIRATORY FAILURE [None]
  - DELIRIUM [None]
  - SUICIDAL IDEATION [None]
  - SOMNOLENCE [None]
  - HYPOTENSION [None]
